FAERS Safety Report 13783286 (Version 1)
Quarter: 2017Q3

REPORT INFORMATION
  Report Type: Spontaneous
  Country: PT (occurrence: PT)
  Receive Date: 20170724
  Receipt Date: 20170724
  Transmission Date: 20171127
  Serious: Yes (Other)
  Sender: FDA-Public Use
  Company Number: PT-JNJFOC-20170715758

PATIENT
  Age: 4 Decade

DRUGS (2)
  1. RISPERIDONE. [Suspect]
     Active Substance: RISPERIDONE
     Indication: SCHIZOPHRENIA
     Route: 065
  2. RISPERIDONE. [Suspect]
     Active Substance: RISPERIDONE
     Indication: SCHIZOPHRENIA
     Dosage: TOOK RISPERIDONE FOR 3 WEEKS
     Route: 065

REACTIONS (3)
  - Off label use [Unknown]
  - Poisoning [Recovering/Resolving]
  - Incorrect dose administered [Unknown]
